FAERS Safety Report 25590461 (Version 1)
Quarter: 2025Q3

REPORT INFORMATION
  Report Type: Spontaneous
  Country: EU (occurrence: EU)
  Receive Date: 20250722
  Receipt Date: 20250722
  Transmission Date: 20251020
  Serious: Yes (Hospitalization, Other)
  Sender: BAYER HEALTHCARE PHARMACEUTICALS INC.
  Company Number: None

PATIENT
  Age: 90 Year
  Sex: Male
  Weight: 66.3 kg

DRUGS (10)
  1. KERENDIA [Suspect]
     Active Substance: FINERENONE
     Indication: Proteinuria
     Dates: start: 202311, end: 202403
  2. KERENDIA [Suspect]
     Active Substance: FINERENONE
     Indication: Proteinuria
  3. SITAGLIPTIN [Suspect]
     Active Substance: SITAGLIPTIN
     Indication: Type 2 diabetes mellitus
     Dates: start: 202111, end: 202501
  4. ASPIRIN [Concomitant]
     Active Substance: ASPIRIN
     Dates: start: 2022, end: 202411
  5. IRBESARTAN [Concomitant]
     Active Substance: IRBESARTAN
     Dates: start: 2005
  6. AMLODIPINE BESYLATE [Concomitant]
     Active Substance: AMLODIPINE BESYLATE
     Dates: start: 2015
  7. METFORMIN [Concomitant]
     Active Substance: METFORMIN HYDROCHLORIDE
     Dates: start: 2005
  8. PHENOXYMETHYLPENICILLIN CALCIUM [Concomitant]
     Active Substance: PHENOXYMETHYLPENICILLIN CALCIUM
     Dates: start: 20240220, end: 20240229
  9. CETIRIZINE HYDROCHLORIDE [Concomitant]
     Active Substance: CETIRIZINE HYDROCHLORIDE
     Dates: start: 2010
  10. DESLORATADINE [Concomitant]
     Active Substance: DESLORATADINE
     Dates: start: 2010

REACTIONS (7)
  - Atrioventricular block [Unknown]
  - Pneumonia [Unknown]
  - Urticaria [Recovered/Resolved]
  - Dyshidrotic eczema [Unknown]
  - Rash vesicular [Unknown]
  - Pemphigoid [Unknown]
  - Impaired quality of life [Unknown]

NARRATIVE: CASE EVENT DATE: 20240101
